FAERS Safety Report 10201921 (Version 1)
Quarter: 2014Q2

REPORT INFORMATION
  Report Type: Spontaneous
  Country: IT (occurrence: IT)
  Receive Date: 20140528
  Receipt Date: 20140528
  Transmission Date: 20141212
  Serious: Yes (Other)
  Sender: FDA-Public Use
  Company Number: IT-TEVA-482664ISR

PATIENT
  Age: 67 Year
  Sex: Male
  Weight: 65 kg

DRUGS (3)
  1. FLUOROURACILE TEVA [Suspect]
     Indication: RECTAL CANCER STAGE III
     Route: 041
     Dates: start: 20140409, end: 20140409
  2. IRINOTECAN KABI [Suspect]
     Indication: RECTAL CANCER STAGE III
     Route: 042
     Dates: start: 20140409, end: 20140409
  3. ERBITUX [Suspect]
     Indication: RECTAL CANCER STAGE III
     Route: 042
     Dates: start: 20140409, end: 20140409

REACTIONS (5)
  - Abdominal pain [Recovered/Resolved]
  - Dehydration [Recovered/Resolved]
  - Diarrhoea [Recovered/Resolved]
  - Stomatitis [Recovered/Resolved]
  - Vomiting [Recovered/Resolved]
